FAERS Safety Report 8475443-X (Version None)
Quarter: 2012Q2

REPORT INFORMATION
  Report Type: 
  Country: None (occurrence: None)
  Receive Date: 20120628
  Receipt Date: 20120626
  Transmission Date: 20120825
  Serious: Yes (Death, Hospitalization)
  Sender: FDA-Public Use
  Company Number: ZA-ROCHE-1082147

PATIENT
  Sex: Male

DRUGS (2)
  1. COPEGUS [Suspect]
     Indication: HEPATITIS C
     Dates: start: 20120608
  2. PEGASYS [Suspect]
     Indication: HEPATITIS C
     Dates: start: 20120608

REACTIONS (3)
  - ASCITES [None]
  - ENCEPHALOPATHY [None]
  - HEPATIC FAILURE [None]
